FAERS Safety Report 7452311-3 (Version None)
Quarter: 2011Q2

REPORT INFORMATION
  Report Type: 
  Country: None (occurrence: None)
  Receive Date: 20110425
  Receipt Date: 20110415
  Transmission Date: 20111010
  Serious: Yes (Hospitalization)
  Sender: FDA-Public Use
  Company Number: 2010SP065568

PATIENT
  Age: 19 Year
  Sex: Female
  Weight: 52.1637 kg

DRUGS (1)
  1. NUVARING [Suspect]
     Indication: CONTRACEPTION
     Dates: start: 20081101, end: 20090112

REACTIONS (3)
  - CEREBROVASCULAR ACCIDENT [None]
  - MULTIPLE INJURIES [None]
  - PAIN [None]
